FAERS Safety Report 11188623 (Version 1)
Quarter: 2015Q2

REPORT INFORMATION
  Report Type: Spontaneous
  Country: US (occurrence: None)
  Receive Date: 20150612
  Receipt Date: 20150612
  Transmission Date: 20150821
  Serious: No
  Sender: FDA-Public Use
  Company Number: None

PATIENT
  Age: 64 Year
  Sex: Female

DRUGS (1)
  1. EFFERVESCENT ANTACID + PAIN RELIEF ASPIRIN 325MG. SODIUM BICARBONATE 1916MG EQUATE [Suspect]
     Active Substance: ANHYDROUS CITRIC ACID\ASPIRIN\SODIUM BICARBONATE
     Indication: DYSPEPSIA
     Route: 048
     Dates: start: 20150609

REACTIONS (4)
  - Product friable [None]
  - Product solubility abnormal [None]
  - Product outer packaging issue [None]
  - Product contamination [None]

NARRATIVE: CASE EVENT DATE: 20150610
